FAERS Safety Report 8942862 (Version 1)
Quarter: 2012Q4

REPORT INFORMATION
  Report Type: Spontaneous
  Country: SE (occurrence: None)
  Receive Date: 20121123
  Receipt Date: 20121123
  Transmission Date: 20130627
  Serious: Yes (Other)
  Sender: FDA-Public Use
  Company Number: DSA_61009_2012

PATIENT
  Age: 54 Year
  Sex: Female

DRUGS (3)
  1. BUPROPION HYDROCHLORIDE [Suspect]
     Indication: BIPOLAR DISORDER
     Route: 048
     Dates: end: 201203
  2. BUPROPION HYDROCHLORIDE [Suspect]
     Indication: DEPRESSION
     Route: 048
     Dates: end: 201203
  3. BUPROPION HYDROCHLORIDE [Suspect]
     Indication: ANXIETY
     Route: 048
     Dates: end: 201203

REACTIONS (2)
  - Grand mal convulsion [None]
  - Muscle spasms [None]
